FAERS Safety Report 25796064 (Version 1)
Quarter: 2025Q3

REPORT INFORMATION
  Report Type: Spontaneous
  Country: US (occurrence: US)
  Receive Date: 20250912
  Receipt Date: 20250912
  Transmission Date: 20251021
  Serious: No
  Sender: ACCORD
  Company Number: US-Accord-502899

PATIENT
  Age: 43 Year
  Sex: Female

DRUGS (1)
  1. UDENYCA [Suspect]
     Active Substance: PEGFILGRASTIM-CBQV
     Indication: Product used for unknown indication
     Dates: start: 20250807

REACTIONS (1)
  - Device malfunction [Unknown]

NARRATIVE: CASE EVENT DATE: 20250801
